FAERS Safety Report 12166979 (Version 1)
Quarter: 2016Q1

REPORT INFORMATION
  Report Type: Spontaneous
  Country: AU (occurrence: AU)
  Receive Date: 20160310
  Receipt Date: 20160310
  Transmission Date: 20160526
  Serious: Yes (Death, Hospitalization, Other)
  Sender: FDA-Public Use
  Company Number: AU-DRREDDYS-USA/AUS/16/0077780

PATIENT
  Sex: Male
  Weight: 1.2 kg

DRUGS (5)
  1. DIAZEPAM. [Concomitant]
     Active Substance: DIAZEPAM
     Route: 065
  2. OLANZAPINE. [Suspect]
     Active Substance: OLANZAPINE
     Indication: PRODUCT USED FOR UNKNOWN INDICATION
     Route: 064
  3. SERTRALINE [Suspect]
     Active Substance: SERTRALINE HYDROCHLORIDE
     Indication: PRODUCT USED FOR UNKNOWN INDICATION
     Route: 064
  4. SERTRALINE [Suspect]
     Active Substance: SERTRALINE HYDROCHLORIDE
     Route: 065
  5. DIAZEPAM. [Concomitant]
     Active Substance: DIAZEPAM
     Indication: PRODUCT USED FOR UNKNOWN INDICATION
     Route: 064

REACTIONS (14)
  - Selective eating disorder [Unknown]
  - Small intestinal obstruction [Unknown]
  - Neonatal respiratory distress syndrome [Unknown]
  - Single umbilical artery [Unknown]
  - Jaundice [Unknown]
  - Abdominal distension [Unknown]
  - Low birth weight baby [Unknown]
  - Gastrooesophageal reflux disease [Unknown]
  - Congenital megacolon [Unknown]
  - Premature baby [Unknown]
  - Sudden infant death syndrome [Fatal]
  - Umbilical hernia [Unknown]
  - Trisomy 21 [Unknown]
  - Foetal exposure during pregnancy [Unknown]
